FAERS Safety Report 16709833 (Version 1)
Quarter: 2019Q3

REPORT INFORMATION
  Report Type: Spontaneous
  Country: DZ (occurrence: DZ)
  Receive Date: 20190816
  Receipt Date: 20190816
  Transmission Date: 20191004
  Serious: Yes (Hospitalization)
  Sender: FDA-Public Use
  Company Number: DZ-SA-2019SA008274

PATIENT
  Age: 45 Year
  Sex: Female
  Weight: 89 kg

DRUGS (2)
  1. LANTUS [Suspect]
     Active Substance: INSULIN GLARGINE
     Indication: DIABETES MELLITUS
     Dosage: 44 U, UNK
     Route: 058
     Dates: start: 2014
  2. APIDRA [Suspect]
     Active Substance: INSULIN GLULISINE
     Dosage: UNK, TID (18 UNITS: MORNING; 26 UNITS: NOON, 22 UNITS: EVENING)
     Route: 058
     Dates: start: 2015

REACTIONS (5)
  - Vision blurred [Recovered/Resolved]
  - Hyperglycaemia [Unknown]
  - Tremor [Recovered/Resolved]
  - Vertigo [Recovered/Resolved]
  - Hypoglycaemia [Unknown]

NARRATIVE: CASE EVENT DATE: 20190113
